FAERS Safety Report 8525814-8 (Version None)
Quarter: 2012Q3

REPORT INFORMATION
  Report Type: 
  Country: None (occurrence: None)
  Receive Date: 20120720
  Receipt Date: 20120719
  Transmission Date: 20120928
  Serious: Yes (Hospitalization)
  Sender: FDA-Public Use
  Company Number: US-B.I. PHARMACEUTICALS,INC./RIDGEFIELD-2012-BP-16151BP

PATIENT
  Sex: Male

DRUGS (9)
  1. PRADAXA [Suspect]
     Indication: ATRIAL FIBRILLATION
     Dates: end: 20120705
  2. PRILOSEC [Concomitant]
  3. DIGOXIN [Concomitant]
  4. COZAAR [Concomitant]
  5. PRADAXA [Suspect]
     Dates: start: 20120713, end: 20120719
  6. LASIX [Concomitant]
  7. AMLODIPINE [Concomitant]
  8. IRON [Concomitant]
  9. PRAVASTATIN [Concomitant]

REACTIONS (3)
  - COLONIC POLYP [None]
  - GASTROINTESTINAL HAEMORRHAGE [None]
  - INTERNATIONAL NORMALISED RATIO INCREASED [None]
